FAERS Safety Report 9072181 (Version 1)
Quarter: 2013Q1

REPORT INFORMATION
  Report Type: Report from Study
  Country: US (occurrence: US)
  Receive Date: 20130129
  Receipt Date: 20130129
  Transmission Date: 20140127
  Serious: Yes (Hospitalization)
  Sender: FDA-Public Use
  Company Number: US-ABBOTT-12P-163-0920710-00

PATIENT
  Age: 38 Year
  Sex: 0
  Weight: 104.42 kg

DRUGS (4)
  1. HUMIRA 40 MG/0.8 ML PEN [Suspect]
     Indication: RHEUMATOID ARTHRITIS
     Dates: start: 201110
  2. HUMIRA 40 MG/0.8 ML PEN [Suspect]
     Dates: start: 201203
  3. HUMIRA 40 MG/0.8 ML PEN [Suspect]
     Dates: start: 201202
  4. PLAQUENIL [Concomitant]
     Indication: PRODUCT USED FOR UNKNOWN INDICATION

REACTIONS (2)
  - Gallbladder operation [Recovered/Resolved]
  - Arthralgia [Recovering/Resolving]
